FAERS Safety Report 8418020-9 (Version None)
Quarter: 2012Q2

REPORT INFORMATION
  Report Type: 
  Country: None (occurrence: None)
  Receive Date: 20120531
  Receipt Date: 20120531
  Transmission Date: 20120825
  Serious: Yes (Hospitalization)
  Sender: FDA-Public Use
  Company Number: None

PATIENT
  Age: 73 Year
  Sex: Female
  Weight: 69.4 kg

DRUGS (1)
  1. GEMCITABINE [Suspect]
     Indication: PANCREATIC CARCINOMA
     Dosage: 1253 MG WEEKLY IV
     Route: 042
     Dates: start: 20120503, end: 20120510

REACTIONS (9)
  - NAUSEA [None]
  - MALAISE [None]
  - HAEMOGLOBIN DECREASED [None]
  - DRUG INTOLERANCE [None]
  - NEOPLASM PROGRESSION [None]
  - PANCREATIC CARCINOMA [None]
  - BACTERIAL TEST POSITIVE [None]
  - URINARY TRACT INFECTION [None]
  - ASTHENIA [None]
